FAERS Safety Report 6667902-7 (Version None)
Quarter: 2010Q2

REPORT INFORMATION
  Report Type: 
  Country: None (occurrence: None)
  Receive Date: 20100401
  Receipt Date: 20100309
  Transmission Date: 20101027
  Serious: Yes (Hospitalization, Other)
  Sender: FDA-Public Use
  Company Number: JP-SOLVAY-00310001485

PATIENT
  Age: 2 Year
  Sex: Male

DRUGS (3)
  1. FLUVOXAMINE MALEATE [Suspect]
     Indication: ACCIDENTAL EXPOSURE
     Dosage: 200 MILLIGRAM(S) ORAL
     Route: 048
     Dates: start: 20100301, end: 20100301
  2. MIRTAZAPINE [Suspect]
     Indication: ACCIDENTAL EXPOSURE
     Dosage: 60 MILLIGRAM(S), ORAL
     Route: 048
     Dates: start: 20100301, end: 20100301
  3. LENDORM [Suspect]
     Indication: ACCIDENTAL EXPOSURE
     Dosage: 1 MILLIGRAM(S), ORAL
     Route: 048
     Dates: start: 20100301, end: 20100301

REACTIONS (5)
  - ACCIDENTAL DRUG INTAKE BY CHILD [None]
  - ACIDOSIS [None]
  - DIZZINESS [None]
  - RESTLESSNESS [None]
  - UNRESPONSIVE TO STIMULI [None]
